FAERS Safety Report 19278873 (Version 1)
Quarter: 2021Q2

REPORT INFORMATION
  Report Type: Spontaneous
  Country: US (occurrence: US)
  Receive Date: 20210520
  Receipt Date: 20210520
  Transmission Date: 20210717
  Serious: Yes (Hospitalization)
  Sender: FDA-Public Use
  Company Number: None

PATIENT
  Sex: Female

DRUGS (1)
  1. CAPECITABINE 500MG TAB [Suspect]
     Active Substance: CAPECITABINE
     Indication: COLON CANCER
     Route: 048
     Dates: start: 20200512

REACTIONS (5)
  - Pruritus [None]
  - Intestinal obstruction [None]
  - Nausea [None]
  - Palmar-plantar erythrodysaesthesia syndrome [None]
  - Hypoaesthesia [None]
